FAERS Safety Report 8576602-8 (Version None)
Quarter: 2012Q3

REPORT INFORMATION
  Report Type: 
  Country: None (occurrence: None)
  Receive Date: 20120807
  Receipt Date: 20120723
  Transmission Date: 20120928
  Serious: Yes (Congenital Anomaly)
  Sender: FDA-Public Use
  Company Number: CO-ROCHE-1095304

PATIENT

DRUGS (1)
  1. ISOTRETINOIN [Suspect]
     Indication: ACNE
     Route: 064

REACTIONS (5)
  - ANOTIA [None]
  - HEART DISEASE CONGENITAL [None]
  - MATERNAL EXPOSURE TIMING UNSPECIFIED [None]
  - CONGENITAL CRANIAL NERVE PARALYSIS [None]
  - MICROTIA [None]
